FAERS Safety Report 10924376 (Version 1)
Quarter: 2015Q1

REPORT INFORMATION
  Report Type: Spontaneous
  Country: US (occurrence: None)
  Receive Date: 20150316
  Receipt Date: 20150316
  Transmission Date: 20150721
  Serious: Yes (Other)
  Sender: FDA-Public Use
  Company Number: None

PATIENT
  Age: 65 Year
  Sex: Male

DRUGS (8)
  1. FISH OIL [Concomitant]
     Active Substance: FISH OIL
  2. LISINOPRIL. [Concomitant]
     Active Substance: LISINOPRIL
  3. ATENOLOL. [Concomitant]
     Active Substance: ATENOLOL
  4. ISOSORBIDE MONONITRATE. [Concomitant]
     Active Substance: ISOSORBIDE MONONITRATE
  5. AMLODIPINE [Concomitant]
     Active Substance: AMLODIPINE BESYLATE
  6. ASPIRN [Concomitant]
     Active Substance: ASPIRIN
  7. FINASTERIDE. [Suspect]
     Active Substance: FINASTERIDE
     Indication: BENIGN PROSTATIC HYPERPLASIA
     Dosage: 1 PILL
     Route: 048
  8. PANTAPRAZOLE [Concomitant]

REACTIONS (3)
  - Loss of libido [None]
  - Breast mass [None]
  - Male genital atrophy [None]
